FAERS Safety Report 7484001-5 (Version None)
Quarter: 2011Q2

REPORT INFORMATION
  Report Type: 
  Country: None (occurrence: None)
  Receive Date: 20110513
  Receipt Date: 20110513
  Transmission Date: 20111010
  Serious: No
  Sender: FDA-Public Use
  Company Number: None

PATIENT
  Age: 65 Year
  Sex: Female
  Weight: 52.6173 kg

DRUGS (1)
  1. OMNARIS [Suspect]
     Indication: RHINORRHOEA
     Dosage: TWO SPRAYS IN EACH NOSTRIL 1 TIME EACH DAY OTHER
     Route: 045
     Dates: start: 20110428, end: 20110428

REACTIONS (5)
  - ASTHENIA [None]
  - ORAL PAIN [None]
  - GINGIVAL PAIN [None]
  - WEIGHT INCREASED [None]
  - TOOTHACHE [None]
